FAERS Safety Report 9481782 (Version 1)
Quarter: 2013Q3

REPORT INFORMATION
  Report Type: Spontaneous
  Country: US (occurrence: US)
  Receive Date: 20130828
  Receipt Date: 20130828
  Transmission Date: 20140515
  Serious: Yes (Other)
  Sender: FDA-Public Use
  Company Number: US-AMGEN-KDL232603

PATIENT
  Age: 46 Year
  Sex: Female

DRUGS (1)
  1. ENBREL [Suspect]
     Indication: RHEUMATOID ARTHRITIS
     Dosage: 50 MG, QWK
     Route: 058
     Dates: start: 20060717

REACTIONS (9)
  - Transient ischaemic attack [Recovered/Resolved]
  - Fibrocystic breast disease [Recovered/Resolved]
  - Hepatitis A [Recovered/Resolved]
  - Dyspnoea [Recovered/Resolved]
  - Vitamin D deficiency [Not Recovered/Not Resolved]
  - Breast abscess [Recovered/Resolved]
  - Skin candida [Recovered/Resolved]
  - Influenza [Recovered/Resolved]
  - Respiratory tract congestion [Recovered/Resolved]
